FAERS Safety Report 8205076-1 (Version None)
Quarter: 2012Q1

REPORT INFORMATION
  Report Type: 
  Country: None (occurrence: None)
  Receive Date: 20120313
  Receipt Date: 20120309
  Transmission Date: 20120608
  Serious: No
  Sender: FDA-Public Use
  Company Number: US-PFIZER INC-2012063547

PATIENT
  Sex: Female

DRUGS (5)
  1. NEURONTIN [Suspect]
     Indication: PRURITUS
  2. NEURONTIN [Suspect]
     Indication: PARAESTHESIA
  3. NEURONTIN [Suspect]
     Indication: SKIN BURNING SENSATION
  4. LYRICA [Suspect]
     Dosage: UNK
  5. NEURONTIN [Suspect]
     Indication: BACK PAIN
     Dosage: UNK

REACTIONS (3)
  - EUPHORIC MOOD [None]
  - SWELLING [None]
  - DRUG INEFFECTIVE [None]
